FAERS Safety Report 24436786 (Version 1)
Quarter: 2024Q4

REPORT INFORMATION
  Report Type: Spontaneous
  Country: FR (occurrence: FR)
  Receive Date: 20241015
  Receipt Date: 20241015
  Transmission Date: 20250115
  Serious: Yes (Life-Threatening, Other)
  Sender: AUROBINDO
  Company Number: FR-ASTRAZENECA-202409GLO011036FR

PATIENT
  Age: 55 Year
  Weight: 88 kg

DRUGS (1)
  1. LIDOCAINE [Suspect]
     Active Substance: LIDOCAINE
     Indication: Colonoscopy
     Dosage: 90 MILLIGRAM
     Route: 042
     Dates: start: 20240827, end: 20240827

REACTIONS (1)
  - Anaphylactic shock [Recovered/Resolved]

NARRATIVE: CASE EVENT DATE: 20240827
